FAERS Safety Report 8187947-8 (Version None)
Quarter: 2012Q1

REPORT INFORMATION
  Report Type: 
  Country: None (occurrence: None)
  Receive Date: 20120306
  Receipt Date: 20120228
  Transmission Date: 20120608
  Serious: Yes (Other)
  Sender: FDA-Public Use
  Company Number: JP-GLAXOSMITHKLINE-B0784436A

PATIENT
  Sex: Male

DRUGS (4)
  1. URIEF [Concomitant]
     Route: 048
     Dates: start: 20090916, end: 20111114
  2. UNKNOWN DRUG [Concomitant]
     Route: 048
     Dates: start: 20090814, end: 20111114
  3. DUTASTERIDE [Suspect]
     Indication: BENIGN PROSTATIC HYPERPLASIA
     Dosage: .5MG PER DAY
     Route: 048
     Dates: start: 20111021, end: 20111113
  4. KEFLEX [Concomitant]
     Route: 048
     Dates: start: 20111111, end: 20111114

REACTIONS (1)
  - HEPATIC FUNCTION ABNORMAL [None]
